FAERS Safety Report 23060183 (Version 1)
Quarter: 2023Q4

REPORT INFORMATION
  Report Type: Spontaneous
  Country: US (occurrence: None)
  Receive Date: 20231012
  Receipt Date: 20231012
  Transmission Date: 20240110
  Serious: Yes (Other)
  Sender: FDA-Public Use
  Company Number: None

PATIENT
  Age: 71 Year
  Sex: Male
  Weight: 107.55 kg

DRUGS (2)
  1. RIVAROXABAN [Suspect]
     Active Substance: RIVAROXABAN
     Indication: Atrial fibrillation
     Dosage: FREQUENCY : DAILY;?
     Route: 048
     Dates: start: 20151019, end: 20230818
  2. ASPIRIN [Suspect]
     Active Substance: ASPIRIN

REACTIONS (5)
  - Haematuria [None]
  - Benign prostatic hyperplasia [None]
  - Therapy interrupted [None]
  - Cardiac procedure complication [None]
  - Medical device site thrombosis [None]

NARRATIVE: CASE EVENT DATE: 20230815
